FAERS Safety Report 10581278 (Version 2)
Quarter: 2014Q4

REPORT INFORMATION
  Report Type: Spontaneous
  Country: BR (occurrence: BR)
  Receive Date: 20141113
  Receipt Date: 20141113
  Transmission Date: 20150529
  Serious: Yes (Other)
  Sender: FDA-Public Use
  Company Number: BR-BAYER-2014-155057

PATIENT
  Age: 42 Year
  Sex: Female

DRUGS (2)
  1. MIRENA [Suspect]
     Active Substance: LEVONORGESTREL
     Indication: MENORRHAGIA
     Dosage: 20 MCG/24HR, CONT
     Route: 015
     Dates: start: 201405
  2. ORAL CONTRACEPTIVE NOS [Concomitant]
     Active Substance: UNSPECIFIED INGREDIENT

REACTIONS (8)
  - Headache [Not Recovered/Not Resolved]
  - Urinary tract infection [Recovered/Resolved]
  - Menorrhagia [Not Recovered/Not Resolved]
  - Menorrhagia [Recovered/Resolved]
  - Procedural pain [Recovered/Resolved]
  - Anaemia [Not Recovered/Not Resolved]
  - Dysmenorrhoea [Not Recovered/Not Resolved]
  - Menstruation delayed [Recovered/Resolved]

NARRATIVE: CASE EVENT DATE: 2014
